FAERS Safety Report 12702012 (Version 2)
Quarter: 2024Q4

REPORT INFORMATION
  Report Type: Spontaneous
  Country: IN (occurrence: IN)
  Receive Date: 20160831
  Receipt Date: 20241226
  Transmission Date: 20250115
  Serious: Yes (Death, Life-Threatening, Other)
  Sender: ALKEM
  Company Number: None

PATIENT
  Age: 3 Year
  Sex: Male

DRUGS (3)
  1. MYCOPHENOLATE MOFETIL [Suspect]
     Active Substance: MYCOPHENOLATE MOFETIL
     Indication: Prophylaxis against graft versus host disease
     Dosage: 15 MG/KG, TID, IN ORAL SUSPENSION OR TABLET FORM
     Route: 048
  2. CYCLOSPORINE [Suspect]
     Active Substance: CYCLOSPORINE
     Indication: Prophylaxis against graft versus host disease
     Dosage: 3 MG/KG, BID IN TWO DIVIDED DOSES
     Route: 042
  3. CYCLOPHOSPHAMIDE [Suspect]
     Active Substance: CYCLOPHOSPHAMIDE
     Indication: Prophylaxis against graft versus host disease
     Dosage: 50 MG/KG, ON DAYS 3 AND 4
     Route: 065

REACTIONS (6)
  - Pneumonia cytomegaloviral [Fatal]
  - Rotavirus infection [Unknown]
  - Adenovirus infection [Unknown]
  - Epstein-Barr virus infection [Unknown]
  - Acute graft versus host disease [Unknown]
  - Drug ineffective [Unknown]
